FAERS Safety Report 16534130 (Version 1)
Quarter: 2019Q3

REPORT INFORMATION
  Report Type: Spontaneous
  Country: US (occurrence: US)
  Receive Date: 20190705
  Receipt Date: 20190705
  Transmission Date: 20191004
  Serious: Yes (Other)
  Sender: FDA-Public Use
  Company Number: US-ASTRAZENECA-2019SE95085

PATIENT
  Sex: Female
  Weight: 90.7 kg

DRUGS (1)
  1. MOVANTIK [Suspect]
     Active Substance: NALOXEGOL OXALATE
     Indication: IMPAIRED GASTRIC EMPTYING
     Route: 048
     Dates: start: 20190619

REACTIONS (6)
  - Hyperhidrosis [Unknown]
  - Bowel movement irregularity [Unknown]
  - Focal dyscognitive seizures [Unknown]
  - Partial seizures [Unknown]
  - Hallucinations, mixed [Unknown]
  - Nausea [Unknown]
